FAERS Safety Report 21388365 (Version 1)
Quarter: 2022Q3

REPORT INFORMATION
  Report Type: Report from Study
  Country: US (occurrence: US)
  Receive Date: 20220928
  Receipt Date: 20220928
  Transmission Date: 20221027
  Serious: Yes (Death)
  Sender: FDA-Public Use
  Company Number: US-ABBVIE-22K-163-4449003-00

PATIENT
  Sex: Male
  Weight: 57.7 kg

DRUGS (11)
  1. VENCLEXTA [Suspect]
     Active Substance: VENETOCLAX
     Indication: Acute monocytic leukaemia (in remission)
     Dosage: 2 TABLETS (100MG) ON DAY 2 OF START OF VENETOCLAX THEN CONTINUE WITH OTHER SCRIPT FOR 200MG DAILY
     Route: 048
     Dates: start: 20220404, end: 20220502
  2. VENCLEXTA [Suspect]
     Active Substance: VENETOCLAX
     Indication: Acute monocytic leukaemia (in remission)
     Dosage: TAKE 1 TABLET (50MG ) ON DAY 1
     Route: 048
     Dates: start: 20220301, end: 202204
  3. VENCLEXTA [Suspect]
     Active Substance: VENETOCLAX
     Indication: Acute monocytic leukaemia (in remission)
     Dosage: TAKE 2 TABLET(S) BY MOUTH EVERY DAY FOR 24 DOSE
     Route: 048
  4. ZOVIRAX [Concomitant]
     Active Substance: ACYCLOVIR
     Indication: Product used for unknown indication
     Route: 048
  5. ZYLOPRIM [Concomitant]
     Active Substance: ALLOPURINOL
     Indication: Product used for unknown indication
     Route: 048
  6. DIFLUCAN [Concomitant]
     Active Substance: FLUCONAZOLE
     Indication: Prophylaxis
     Route: 048
  7. LEVAQUIN [Concomitant]
     Active Substance: LEVOFLOXACIN
     Indication: Product used for unknown indication
     Route: 048
     Dates: start: 20220220
  8. ATIVAN [Concomitant]
     Active Substance: LORAZEPAM
     Indication: Vomiting
     Route: 048
     Dates: start: 20220304, end: 20220304
  9. ZOFRAN [Concomitant]
     Active Substance: ONDANSETRON HYDROCHLORIDE
     Indication: Nausea
     Route: 048
     Dates: start: 20220304, end: 20220403
  10. COMPAZINE [Concomitant]
     Active Substance: PROCHLORPERAZINE MALEATE
     Indication: Product used for unknown indication
     Route: 048
     Dates: start: 20220304, end: 20220403
  11. OXYCODONE [Concomitant]
     Active Substance: OXYCODONE
     Indication: Rash

REACTIONS (3)
  - Death [Fatal]
  - Laboratory test abnormal [Recovered/Resolved]
  - White blood cell count decreased [Recovered/Resolved]
